FAERS Safety Report 17982349 (Version 2)
Quarter: 2020Q3

REPORT INFORMATION
  Report Type: Spontaneous
  Country: US (occurrence: US)
  Receive Date: 20200706
  Receipt Date: 20200709
  Transmission Date: 20201103
  Serious: Yes (Other)
  Sender: FDA-Public Use
  Company Number: US-ELI_LILLY_AND_COMPANY-US202006012999

PATIENT
  Age: 84 Year
  Sex: Female

DRUGS (5)
  1. SODIUM [Concomitant]
     Active Substance: SODIUM
     Indication: SUPPLEMENTATION THERAPY
     Dosage: UNK
  2. TRADJENTA [Concomitant]
     Active Substance: LINAGLIPTIN
     Indication: PRODUCT USED FOR UNKNOWN INDICATION
     Dosage: 20 U, BID
  3. MAGNESIUM [Concomitant]
     Active Substance: MAGNESIUM
     Indication: SUPPLEMENTATION THERAPY
     Dosage: UNK
  4. POTASSIUM [Concomitant]
     Active Substance: POTASSIUM
     Indication: SUPPLEMENTATION THERAPY
     Dosage: UNK
  5. HUMALOG MIX75/25 [Suspect]
     Active Substance: INSULIN LISPRO
     Indication: TYPE 2 DIABETES MELLITUS
     Dosage: UNK UNK, UNKNOWN
     Route: 065
     Dates: start: 2010

REACTIONS (11)
  - Chronic kidney disease [Not Recovered/Not Resolved]
  - Visual impairment [Recovered/Resolved]
  - Hypoacusis [Unknown]
  - Fluid retention [Not Recovered/Not Resolved]
  - Tinnitus [Recovered/Resolved]
  - Blood sodium increased [Unknown]
  - Dizziness [Recovered/Resolved]
  - Blood potassium increased [Unknown]
  - Blood magnesium increased [Unknown]
  - Memory impairment [Unknown]
  - Neck mass [Recovered/Resolved]

NARRATIVE: CASE EVENT DATE: 202006
